FAERS Safety Report 7730683 (Version 3)
Quarter: 2013Q1

REPORT INFORMATION
  Report Type: Spontaneous
  Country: US (occurrence: US)
  Receive Date: 20101222
  Receipt Date: 20130117
  Transmission Date: 20140127
  Serious: Yes (Other)
  Sender: FDA-Public Use
  Company Number: US-ELI_LILLY_AND_COMPANY-US201007000401

PATIENT
  Age: 62 None
  Sex: Female

DRUGS (4)
  1. FORTEO [Suspect]
     Indication: OSTEOPOROSIS
     Dosage: 20 UG, DAILY (1/D)
     Route: 065
     Dates: start: 20100610
  2. FORTEO [Suspect]
     Dosage: 20 UG, DAILY (1/D)
     Route: 065
  3. FORTEO [Suspect]
     Dosage: 20 UG, QD
  4. FORTEO [Suspect]
     Dosage: 20 UG, QD

REACTIONS (23)
  - Aortic aneurysm [Unknown]
  - Injection site reaction [Unknown]
  - Injection site urticaria [Unknown]
  - Urticaria [Unknown]
  - Neck pain [Unknown]
  - Injection site bruising [Unknown]
  - Blood pressure decreased [Unknown]
  - Burning sensation [Unknown]
  - Feeling hot [Unknown]
  - Asthenia [Unknown]
  - Thyroid disorder [Unknown]
  - Blood calcium decreased [Unknown]
  - Mobility decreased [Unknown]
  - Chondropathy [Unknown]
  - Dysstasia [Unknown]
  - Vitamin D decreased [Unknown]
  - Influenza like illness [Unknown]
  - Heart rate decreased [Unknown]
  - Blood calcium increased [Unknown]
  - Dizziness [Unknown]
  - Arthralgia [Unknown]
  - Injection site pain [Unknown]
  - Adverse event [Unknown]
